FAERS Safety Report 21174563 (Version 1)
Quarter: 2022Q3

REPORT INFORMATION
  Report Type: Spontaneous
  Country: US (occurrence: None)
  Receive Date: 20220805
  Receipt Date: 20220805
  Transmission Date: 20221027
  Serious: Yes (Other)
  Sender: FDA-Public Use
  Company Number: US-ROCHE-3102732

PATIENT
  Age: 82 Year
  Sex: Female

DRUGS (4)
  1. VABYSMO [Suspect]
     Active Substance: FARICIMAB-SVOA
     Indication: Age-related macular degeneration
     Route: 065
     Dates: start: 20220505
  2. LUCENTIS [Concomitant]
     Active Substance: RANIBIZUMAB
  3. VANCOMYCIN [Concomitant]
     Active Substance: VANCOMYCIN
     Route: 050
  4. CEFTAZIDIME [Concomitant]
     Active Substance: CEFTAZIDIME
     Route: 050

REACTIONS (1)
  - Endophthalmitis [Recovering/Resolving]

NARRATIVE: CASE EVENT DATE: 20220507
